FAERS Safety Report 7146152-4 (Version None)
Quarter: 2010Q4

REPORT INFORMATION
  Report Type: 
  Country: None (occurrence: None)
  Receive Date: 20101208
  Receipt Date: 20101201
  Transmission Date: 20110411
  Serious: Yes (Other)
  Sender: FDA-Public Use
  Company Number: US-US-EMD SERONO, INC.-7013034

PATIENT
  Sex: Female
  Weight: 64 kg

DRUGS (12)
  1. REBIF [Suspect]
     Indication: MULTIPLE SCLEROSIS
     Route: 058
     Dates: start: 20090810, end: 20100310
  2. REBIF [Suspect]
     Route: 058
     Dates: start: 20100318, end: 20100420
  3. REBIF [Suspect]
     Dates: end: 20100801
  4. REBIF [Suspect]
     Dates: start: 20100801
  5. CYMBALTA [Concomitant]
     Indication: PAIN
  6. CYMBALTA [Concomitant]
     Indication: DEPRESSION
  7. PROVIGIL [Concomitant]
     Indication: FATIGUE
  8. KLONOPIN [Concomitant]
     Indication: MUSCLE SPASMS
  9. KLONOPIN [Concomitant]
     Indication: INSOMNIA
  10. ENABLEX [Concomitant]
     Indication: MICTURITION URGENCY
  11. VITAMIN B-12 [Concomitant]
     Route: 030
  12. OTHER UNKNOWN MEDICATIONS [Concomitant]

REACTIONS (3)
  - CARDIAC PACEMAKER INSERTION [None]
  - NEUTROPENIA [None]
  - URINARY TRACT INFECTION [None]
